FAERS Safety Report 7917752-6 (Version None)
Quarter: 2011Q4

REPORT INFORMATION
  Report Type: 
  Country: None (occurrence: None)
  Receive Date: 20111116
  Receipt Date: 20111111
  Transmission Date: 20120403
  Serious: Yes (Other)
  Sender: FDA-Public Use
  Company Number: DE-JNJFOC-20110902187

PATIENT
  Age: 71 Year
  Sex: Male
  Weight: 75 kg

DRUGS (10)
  1. CONCOR [Concomitant]
     Route: 048
     Dates: start: 20110211
  2. KALIUM-MAGNESIUM [Concomitant]
     Dosage: 1-0-1
     Route: 048
  3. PALEXIA RETARD [Suspect]
     Indication: PRODUCT USED FOR UNKNOWN INDICATION
     Dosage: 2X50 MG/DAY
     Route: 048
  4. NEXIUM [Concomitant]
     Dosage: 40MG-0-40MG
     Route: 048
  5. ASPIRIN [Concomitant]
     Dosage: 0-100MG-0
     Route: 048
  6. ATACAND [Concomitant]
     Dosage: 8MG-0-0
     Route: 048
  7. AMIODARONE HCL [Concomitant]
     Route: 048
     Dates: start: 20100628
  8. TEBONIN [Concomitant]
     Dosage: 120MG-0-0
     Route: 048
  9. PRAVASTATIN SODIUM [Concomitant]
     Route: 048
     Dates: start: 20090604
  10. OSSOFORTIN [Concomitant]
     Dosage: 1-0-0
     Route: 048

REACTIONS (6)
  - PERFORMANCE STATUS DECREASED [None]
  - NAUSEA [None]
  - ATRIAL FIBRILLATION [None]
  - DIZZINESS [None]
  - TACHYCARDIA [None]
  - TACHYARRHYTHMIA [None]
